FAERS Safety Report 14818823 (Version 1)
Quarter: 2018Q2

REPORT INFORMATION
  Report Type: Report from Study
  Country: US (occurrence: US)
  Receive Date: 20180427
  Receipt Date: 20180427
  Transmission Date: 20180711
  Serious: Yes (Other)
  Sender: FDA-Public Use
  Company Number: US-BRISTOL-MYERS SQUIBB COMPANY-BMS-2018-036392

PATIENT
  Age: 35 Year
  Sex: Female

DRUGS (2)
  1. TRIAMCINOLONE ACETONIDE. [Suspect]
     Active Substance: TRIAMCINOLONE ACETONIDE
     Indication: UVEITIS
     Route: 065
  2. HUMIRA [Suspect]
     Active Substance: ADALIMUMAB
     Indication: JUVENILE IDIOPATHIC ARTHRITIS
     Dosage: UNK
     Route: 058
     Dates: start: 20180211

REACTIONS (9)
  - Fatigue [Unknown]
  - Headache [Unknown]
  - Pain [Recovered/Resolved]
  - Intraocular pressure increased [Recovered/Resolved]
  - Nausea [Unknown]
  - Loss of consciousness [Recovered/Resolved]
  - Vomiting [Unknown]
  - Feeling abnormal [Unknown]
  - Injection site pain [Unknown]

NARRATIVE: CASE EVENT DATE: 201802
